FAERS Safety Report 7898060-9 (Version None)
Quarter: 2011Q4

REPORT INFORMATION
  Report Type: 
  Country: None (occurrence: None)
  Receive Date: 20111107
  Receipt Date: 20111028
  Transmission Date: 20120403
  Serious: Yes (Other)
  Sender: FDA-Public Use
  Company Number: US-AMGEN-USASP2011056172

PATIENT
  Age: 37 Year
  Sex: Female

DRUGS (2)
  1. ENBREL [Suspect]
     Indication: RHEUMATOID ARTHRITIS
     Dosage: 50 MG, QWK
     Dates: start: 20100801, end: 20110701
  2. TREXALL [Concomitant]
     Dosage: 8 MG, QWK
     Dates: start: 19990101

REACTIONS (8)
  - INJECTION SITE HAEMATOMA [None]
  - PAIN IN EXTREMITY [None]
  - PAIN [None]
  - GAIT DISTURBANCE [None]
  - NAUSEA [None]
  - ARTHRALGIA [None]
  - INJECTION SITE PAIN [None]
  - VOMITING [None]
